FAERS Safety Report 25898617 (Version 1)
Quarter: 2025Q4

REPORT INFORMATION
  Report Type: Spontaneous
  Country: CN (occurrence: CN)
  Receive Date: 20251009
  Receipt Date: 20251009
  Transmission Date: 20260118
  Serious: Yes (Hospitalization, Other)
  Sender: BEIGENE
  Company Number: CN-BEIGENE-BGN-2025-016957

PATIENT
  Age: 70 Year
  Weight: 50 kg

DRUGS (10)
  1. TISLELIZUMAB [Suspect]
     Active Substance: TISLELIZUMAB
     Indication: Lung neoplasm malignant
     Dosage: 200 MILLIGRAM, QD
  2. TISLELIZUMAB [Suspect]
     Active Substance: TISLELIZUMAB
     Dosage: 200 MILLIGRAM, QD
     Route: 041
  3. TISLELIZUMAB [Suspect]
     Active Substance: TISLELIZUMAB
     Dosage: 200 MILLIGRAM, QD
     Route: 041
  4. TISLELIZUMAB [Suspect]
     Active Substance: TISLELIZUMAB
     Dosage: 200 MILLIGRAM, QD
  5. DOCETAXEL [Concomitant]
     Active Substance: DOCETAXEL
     Indication: Lung neoplasm malignant
     Dosage: 109 MILLIGRAM, QD
     Route: 041
  6. DOCETAXEL [Concomitant]
     Active Substance: DOCETAXEL
     Dosage: 109 MILLIGRAM, QD
  7. AVASTIN [Concomitant]
     Active Substance: BEVACIZUMAB
     Indication: Lung neoplasm malignant
     Dosage: 375 MILLIGRAM, QD
     Route: 041
  8. AVASTIN [Concomitant]
     Active Substance: BEVACIZUMAB
     Dosage: 375 MILLIGRAM, QD
  9. CISPLATIN [Concomitant]
     Active Substance: CISPLATIN
     Dosage: 43 MILLIGRAM, D1,2
  10. CISPLATIN [Concomitant]
     Active Substance: CISPLATIN
     Dosage: 20 MILLIGRAM, D3

REACTIONS (6)
  - Diarrhoea haemorrhagic [Recovering/Resolving]
  - Nausea [Unknown]
  - Fatigue [Unknown]
  - Decreased appetite [Unknown]
  - Haematochezia [Unknown]
  - Pyrexia [Unknown]
